FAERS Safety Report 4657927-5 (Version None)
Quarter: 2005Q2

REPORT INFORMATION
  Report Type: 
  Country: None (occurrence: None)
  Receive Date: 20050510
  Receipt Date: 20050429
  Transmission Date: 20051028
  Serious: Yes (Other)
  Sender: FDA-Public Use
  Company Number: US-SANOFI-SYNTHELABO-A03200501269

PATIENT
  Age: 61 Year
  Sex: Male

DRUGS (3)
  1. ELOXATIN [Suspect]
     Indication: NEOPLASM MALIGNANT
     Route: 042
     Dates: start: 20050101, end: 20050101
  2. FLUOROURACIL [Concomitant]
     Dosage: UNK
     Route: 042
  3. LEUCOVORIN CALCIUM [Concomitant]
     Dosage: UNK
     Route: 042

REACTIONS (1)
  - CENTRAL PONTINE MYELINOLYSIS [None]
